FAERS Safety Report 13609475 (Version 1)
Quarter: 2017Q2

REPORT INFORMATION
  Report Type: Spontaneous
  Country: US (occurrence: US)
  Receive Date: 20170602
  Receipt Date: 20170602
  Transmission Date: 20170830
  Serious: No
  Sender: FDA-Public Use
  Company Number: US-LEXICON PHARMACEUTICALS, INC-17-1606-00111

PATIENT
  Age: 50 Year
  Sex: Female

DRUGS (6)
  1. PANTOPRAZOLE [Concomitant]
     Active Substance: PANTOPRAZOLE
  2. CALCIUM GLUCONATE. [Concomitant]
     Active Substance: CALCIUM GLUCONATE
  3. TYLENOL [Concomitant]
     Active Substance: ACETAMINOPHEN
  4. FENTANYL. [Concomitant]
     Active Substance: FENTANYL
  5. SANDOSTATIN [Concomitant]
     Active Substance: OCTREOTIDE ACETATE
  6. TELOTRISTAT ETHYL [Suspect]
     Active Substance: TELOTRISTAT ETHYL
     Indication: CARCINOID SYNDROME
     Route: 048
     Dates: start: 20170406, end: 20170414

REACTIONS (3)
  - Headache [Recovered/Resolved]
  - Dizziness [Recovered/Resolved]
  - Fatigue [Recovered/Resolved]

NARRATIVE: CASE EVENT DATE: 201704
